FAERS Safety Report 7677056-6 (Version None)
Quarter: 2011Q3

REPORT INFORMATION
  Report Type: 
  Country: None (occurrence: None)
  Receive Date: 20110811
  Receipt Date: 20110729
  Transmission Date: 20111222
  Serious: Yes (Other)
  Sender: FDA-Public Use
  Company Number: FR-ROCHE-794036

PATIENT
  Sex: Female
  Weight: 56 kg

DRUGS (10)
  1. BEVACIZUMAB [Suspect]
     Indication: GLIOBLASTOMA
     Route: 042
     Dates: start: 20110706
  2. CITALOPRAM HYDROBROMIDE [Concomitant]
  3. LOVENOX [Concomitant]
     Dosage: DRUG:LOVENOX 0.4 ML, TDD:1/D
  4. IRINOTECAN HCL [Suspect]
     Indication: GLIOBLASTOMA
     Route: 042
     Dates: start: 20110706
  5. TEMOZOLOMIDE [Suspect]
     Indication: GLIOBLASTOMA
     Dosage: LAST DOSE PRIOR TO SAE:03 MAY 2011
     Route: 048
     Dates: start: 20101007
  6. LEXOMIL [Concomitant]
     Dosage: DRUG:LEXOMIL 6 MG,TDD:1/2 TABLET
  7. RABEPRAZOLE SODIUM [Concomitant]
  8. LASIX [Concomitant]
  9. DURAGESIC-100 [Concomitant]
     Dosage: DRUG: DUROGESIC 50 UG
  10. LEVOTHYROXINE SODIUM [Concomitant]

REACTIONS (2)
  - CYTOLYTIC HEPATITIS [None]
  - NEUTROPENIA [None]
